FAERS Safety Report 12400725 (Version 1)
Quarter: 2016Q2

REPORT INFORMATION
  Report Type: Spontaneous
  Country: US (occurrence: None)
  Receive Date: 20160524
  Receipt Date: 20160524
  Transmission Date: 20160815
  Serious: Yes (Disabling, Other)
  Sender: FDA-Public Use
  Company Number: None

PATIENT
  Age: 74 Year
  Sex: Female
  Weight: 61.24 kg

DRUGS (10)
  1. XARELTO [Suspect]
     Active Substance: RIVAROXABAN
     Indication: THROMBOSIS PROPHYLAXIS
     Dosage: STARTED 5/18/14 10 MG DAILY X 20 DAYS TOOK 8 DAYS + MORE GASTRIC BLEEDS
     Route: 048
     Dates: start: 20140518, end: 20140526
  2. INHALER [Concomitant]
     Active Substance: UNSPECIFIED INGREDIENT
  3. SIMVASTATIN. [Concomitant]
     Active Substance: SIMVASTATIN
  4. ALLERGY INJECTIONS [Concomitant]
  5. VITAMIN C [Concomitant]
     Active Substance: ASCORBIC ACID
  6. FOSAMAX [Concomitant]
     Active Substance: ALENDRONATE SODIUM
  7. VITAMIN D3 [Concomitant]
     Active Substance: CHOLECALCIFEROL
  8. CALCIUM [Concomitant]
     Active Substance: CALCIUM
  9. MULTIPLE VITAMIN [Concomitant]
     Active Substance: VITAMINS
  10. CENTRUM VITAMINS LIQUID [Concomitant]
     Active Substance: VITAMINS

REACTIONS (6)
  - Gastritis [None]
  - Weight decreased [None]
  - Gastrointestinal haemorrhage [None]
  - Pain [None]
  - Asthenia [None]
  - Incision site haemorrhage [None]

NARRATIVE: CASE EVENT DATE: 20140513
